FAERS Safety Report 21973872 (Version 1)
Quarter: 2023Q1

REPORT INFORMATION
  Report Type: Spontaneous
  Country: US (occurrence: US)
  Receive Date: 20230209
  Receipt Date: 20230209
  Transmission Date: 20230417
  Serious: Yes (Hospitalization, Other)
  Sender: FDA-Public Use
  Company Number: US-GLAXOSMITHKLINE-US2023AMR017237

PATIENT

DRUGS (8)
  1. BENLYSTA [Suspect]
     Active Substance: BELIMUMAB
     Indication: Lupus nephritis
     Dosage: UNK
  2. BENLYSTA [Suspect]
     Active Substance: BELIMUMAB
     Indication: Lupus nephritis
     Dosage: UNK
  3. XELJANZ [Suspect]
     Active Substance: TOFACITINIB CITRATE
     Indication: Product used for unknown indication
     Dosage: UNK, 10MG, 5MG IN THE MORNING AND 5MG AT NIGHT
     Dates: start: 2019
  4. SOLU-MEDROL [Suspect]
     Active Substance: METHYLPREDNISOLONE SODIUM SUCCINATE
     Indication: Product used for unknown indication
     Dosage: UNK
  5. KEFLEX [Suspect]
     Active Substance: CEPHALEXIN
     Indication: Product used for unknown indication
     Dosage: UNK
  6. ROCEPHIN [Suspect]
     Active Substance: CEFTRIAXONE SODIUM
     Indication: Product used for unknown indication
     Dosage: UNK
  7. METHOTREXATE [Concomitant]
     Active Substance: METHOTREXATE
     Indication: Systemic lupus erythematosus
     Dosage: 6 DF (PILLS), WE
     Dates: start: 202012, end: 202012
  8. METHOTREXATE [Concomitant]
     Active Substance: METHOTREXATE
     Indication: Rheumatoid arthritis

REACTIONS (32)
  - Immunosuppression [Unknown]
  - Intestinal prolapse [Unknown]
  - Colitis ulcerative [Unknown]
  - Impaired gastric emptying [Unknown]
  - Neutropenia [Unknown]
  - Thrombosis [Unknown]
  - Pulmonary embolism [Unknown]
  - Pyelonephritis [Unknown]
  - Kidney infection [Unknown]
  - Sepsis [Unknown]
  - Pathogen resistance [Unknown]
  - Rheumatoid arthritis [Unknown]
  - Systemic lupus erythematosus [Unknown]
  - Alopecia [Unknown]
  - Phlebitis [Unknown]
  - Urinary tract infection [Unknown]
  - Mental disorder [Unknown]
  - Injection site reaction [Unknown]
  - Feeling abnormal [Unknown]
  - White blood cell count decreased [Unknown]
  - Vascular pseudoaneurysm [Unknown]
  - Illness [Unknown]
  - Adrenal insufficiency [Unknown]
  - Cystitis interstitial [Unknown]
  - Dysphagia [Unknown]
  - Pancreatic disorder [Unknown]
  - Oesophagogastric fundoplasty [Unknown]
  - Bacterial infection [Unknown]
  - Abdominal pain [Unknown]
  - Clostridium difficile infection [Unknown]
  - Gastric operation [Unknown]
  - Drug ineffective [Unknown]
